FAERS Safety Report 17872531 (Version 3)
Quarter: 2020Q2

REPORT INFORMATION
  Report Type: Spontaneous
  Country: AU (occurrence: AU)
  Receive Date: 20200608
  Receipt Date: 20200629
  Transmission Date: 20200714
  Serious: Yes (Other)
  Sender: FDA-Public Use
  Company Number: AU-JNJFOC-20200536551

PATIENT

DRUGS (2)
  1. INFLIXIMAB [Suspect]
     Active Substance: INFLIXIMAB
     Indication: COLITIS ULCERATIVE
     Route: 065
     Dates: start: 201404
  2. REMICADE [Suspect]
     Active Substance: INFLIXIMAB
     Indication: PRODUCT USED FOR UNKNOWN INDICATION
     Route: 042
     Dates: start: 201404

REACTIONS (8)
  - Diarrhoea [Recovering/Resolving]
  - Haematochezia [Unknown]
  - Malaise [Recovering/Resolving]
  - Drug ineffective [Unknown]
  - Colitis ulcerative [Recovering/Resolving]
  - Condition aggravated [Recovering/Resolving]
  - C-reactive protein increased [Unknown]
  - Faecal calprotectin increased [Unknown]

NARRATIVE: CASE EVENT DATE: 201903
